FAERS Safety Report 6082574-0 (Version None)
Quarter: 2009Q1

REPORT INFORMATION
  Report Type: 
  Country: None (occurrence: None)
  Receive Date: 20090218
  Receipt Date: 20090206
  Transmission Date: 20090719
  Serious: Yes (Hospitalization)
  Sender: FDA-Public Use
  Company Number: CH-PFIZER INC-2009167092

PATIENT

DRUGS (9)
  1. ZYVOXID [Suspect]
     Indication: PNEUMONIA STAPHYLOCOCCAL
     Dosage: 600 MG, 2X/DAY
     Route: 048
     Dates: start: 20090112
  2. PHENYTOIN [Suspect]
     Indication: EPILEPSY
     Dosage: 100 MG, 2X/DAY
     Route: 048
  3. PHENYTOIN [Suspect]
     Dosage: 100 MG, 3X/DAY
     Route: 048
  4. URBANYL [Concomitant]
     Dosage: 10 MG, 2X/DAY
     Route: 048
     Dates: end: 20090114
  5. BELOC ZOK [Concomitant]
     Dosage: 25 MG, 1X/DAY
  6. ASPIRIN [Concomitant]
     Dosage: 100 MG, 1X/DAY
  7. PRAVASTATIN [Concomitant]
     Dosage: 40 MG, 1X/DAY
     Route: 048
  8. EUTHYROX [Concomitant]
     Dosage: 100 UG, 1X/DAY
     Route: 048
  9. TORASEMIDE [Concomitant]
     Dosage: 10 MG, 1X/DAY
     Route: 048

REACTIONS (3)
  - CONVULSIVE THRESHOLD LOWERED [None]
  - DRUG LEVEL BELOW THERAPEUTIC [None]
  - EPILEPSY [None]
